FAERS Safety Report 19012242 (Version 1)
Quarter: 2021Q1

REPORT INFORMATION
  Report Type: Spontaneous
  Country: US (occurrence: US)
  Receive Date: 20210315
  Receipt Date: 20210315
  Transmission Date: 20210420
  Serious: Yes (Death, Hospitalization, Other)
  Sender: FDA-Public Use
  Company Number: US-PFIZER INC-2021250539

PATIENT
  Age: 18 Year
  Sex: Female

DRUGS (4)
  1. ALECTINIB. [Suspect]
     Active Substance: ALECTINIB
     Indication: EPITHELIOID SARCOMA
     Dosage: UNK
  2. DOXORUBICIN HCL [Suspect]
     Active Substance: DOXORUBICIN HYDROCHLORIDE
     Indication: EPITHELIOID SARCOMA
     Dosage: UNK
  3. VINBLASTINE [Suspect]
     Active Substance: VINBLASTINE
     Indication: EPITHELIOID SARCOMA
     Dosage: UNK
  4. BRENTUXIMAB [Suspect]
     Active Substance: BRENTUXIMAB VEDOTIN
     Indication: EPITHELIOID SARCOMA
     Dosage: UNK

REACTIONS (8)
  - Multiple organ dysfunction syndrome [Unknown]
  - Haemorrhage [Fatal]
  - Pancytopenia [Unknown]
  - Pulmonary embolism [Unknown]
  - Candida pneumonia [Fatal]
  - Diffuse alveolar damage [Fatal]
  - Haemoptysis [Unknown]
  - Cytomegalovirus viraemia [Unknown]
